FAERS Safety Report 6135098-6 (Version None)
Quarter: 2009Q1

REPORT INFORMATION
  Report Type: 
  Country: None (occurrence: None)
  Receive Date: 20090327
  Receipt Date: 20090319
  Transmission Date: 20090719
  Serious: Yes (Hospitalization)
  Sender: FDA-Public Use
  Company Number: US-JNJFOC-20090305877

PATIENT
  Age: 30 Year
  Sex: Male
  Weight: 86.18 kg

DRUGS (6)
  1. EXTRA STRENGTH TYLENOL [Suspect]
     Route: 048
  2. EXTRA STRENGTH TYLENOL [Suspect]
     Indication: PAIN
     Route: 048
  3. ADDERALL 10 [Interacting]
  4. ADDERALL 10 [Interacting]
     Indication: ATTENTION DEFICIT/HYPERACTIVITY DISORDER
  5. PERCOCET [Concomitant]
     Indication: PAIN
  6. VALIUM [Concomitant]
     Indication: DRUG USE FOR UNKNOWN INDICATION

REACTIONS (9)
  - AMNESIA [None]
  - DIZZINESS [None]
  - DRUG INTERACTION [None]
  - HEART RATE INCREASED [None]
  - INCORRECT DOSE ADMINISTERED [None]
  - LOSS OF CONSCIOUSNESS [None]
  - NAUSEA [None]
  - PULSE ABSENT [None]
  - RESPIRATORY ARREST [None]
